FAERS Safety Report 4732168-1 (Version None)
Quarter: 2005Q3

REPORT INFORMATION
  Report Type: 
  Country: None (occurrence: None)
  Receive Date: 20050715
  Receipt Date: 20031201
  Transmission Date: 20060218
  Serious: Yes (Death)
  Sender: FDA-Public Use
  Company Number: USA-2003-0011610

PATIENT
  Age: 49 Year
  Sex: Female
  Weight: 58 kg

DRUGS (7)
  1. MORPHINE SULFATE [Suspect]
     Route: 065
  2. OXYCODONE HCL [Suspect]
     Route: 065
  3. MEPROBAMATE [Suspect]
     Route: 065
  4. CARISOPRODOL [Suspect]
     Route: 065
  5. DIAZEPAM [Suspect]
     Route: 065
  6. OXAZEPAM [Suspect]
     Route: 065
  7. TEMAZEPAM [Suspect]
     Route: 065

REACTIONS (1)
  - ACCIDENTAL OVERDOSE [None]
